FAERS Safety Report 10519368 (Version 1)
Quarter: 2014Q4

REPORT INFORMATION
  Report Type: Spontaneous
  Country: GB (occurrence: GB)
  Receive Date: 20141015
  Receipt Date: 20141015
  Transmission Date: 20150528
  Serious: Yes (Hospitalization, Other)
  Sender: FDA-Public Use
  Company Number: GB-PAR PHARMACEUTICAL, INC-2014SCPR009438

PATIENT

DRUGS (1)
  1. KETALAR [Suspect]
     Active Substance: KETAMINE HYDROCHLORIDE
     Indication: SUBSTANCE USE
     Dosage: UNK, UNKNOWN
     Route: 065

REACTIONS (7)
  - Hydroureter [Unknown]
  - Blood creatinine increased [Unknown]
  - Drug abuse [Unknown]
  - Abdominal pain [Unknown]
  - Hydronephrosis [Unknown]
  - Malnutrition [Unknown]
  - Cystitis [Unknown]
